FAERS Safety Report 13985004 (Version 1)
Quarter: 2017Q3

REPORT INFORMATION
  Report Type: Spontaneous
  Country: AT (occurrence: AT)
  Receive Date: 20170919
  Receipt Date: 20170919
  Transmission Date: 20171128
  Serious: Yes (Other)
  Sender: FDA-Public Use
  Company Number: AT-AMGEN-AUTSP2017140669

PATIENT
  Age: 35 Year
  Sex: Female
  Weight: 100 kg

DRUGS (6)
  1. PREDNISOLON [Concomitant]
     Active Substance: PREDNISOLONE
     Indication: RHEUMATOID ARTHRITIS
     Dosage: 7.5 MG, QD
  2. MAGNOSOLV [Concomitant]
     Dosage: 1 DF, QD
  3. ENBREL [Suspect]
     Active Substance: ETANERCEPT
     Indication: RHEUMATOID ARTHRITIS
     Dosage: 25 MG, 2X/WEEK, MON AND THU
     Route: 065
     Dates: start: 2012
  4. VENLAFAXINE HCL [Suspect]
     Active Substance: VENLAFAXINE HYDROCHLORIDE
     Indication: DEPRESSION
     Dosage: 75 MG, QD
     Route: 065
  5. TRITTICO XR [Concomitant]
     Active Substance: TRAZODONE HYDROCHLORIDE
     Indication: DEPRESSION
     Dosage: 75 MG, QD
  6. OLEOVIT-D3 [Concomitant]
     Dosage: 30 GTT, WEEKLY

REACTIONS (3)
  - Amniorrhexis [Unknown]
  - Fall [Unknown]
  - Premature delivery [Unknown]

NARRATIVE: CASE EVENT DATE: 201708
